FAERS Safety Report 6222053 (Version 2)
Quarter: 2013Q1

REPORT INFORMATION
  Report Type: Spontaneous
  Country: US (occurrence: US)
  Receive Date: 20070124
  Receipt Date: 20130208
  Transmission Date: 20140127
  Serious: No
  Sender: FDA-Public Use
  Company Number: US-GLAXOSMITHKLINE-A0597133A

PATIENT
  Age: 62 Year
  Sex: Female

DRUGS (5)
  1. PAXIL CR [Suspect]
     Indication: PANIC DISORDER
     Dosage: 25MG PER DAY
     Route: 048
     Dates: start: 20060224
  2. PAROXETINE [Suspect]
     Indication: PRODUCT USED FOR UNKNOWN INDICATION
     Route: 048
  3. PAXIL [Suspect]
     Indication: GENERALISED ANXIETY DISORDER
     Dosage: 10MG TWICE PER DAY
     Route: 048
     Dates: start: 1992
  4. CORGARD [Concomitant]
  5. SPIRONOLACTONE [Concomitant]

REACTIONS (5)
  - Blood pressure increased [Unknown]
  - Feeling jittery [Unknown]
  - Abnormal dreams [Unknown]
  - Drug ineffective [Unknown]
  - Dizziness [Not Recovered/Not Resolved]
